FAERS Safety Report 17959451 (Version 1)
Quarter: 2020Q2

REPORT INFORMATION
  Report Type: Report from Study
  Country: BR (occurrence: BR)
  Receive Date: 20200629
  Receipt Date: 20200629
  Transmission Date: 20200714
  Serious: Yes (Other)
  Sender: FDA-Public Use
  Company Number: NVSC2020BR181925

PATIENT
  Age: 49 Year
  Sex: Female

DRUGS (2)
  1. MONTELAIR [Concomitant]
     Active Substance: MONTELUKAST SODIUM
     Indication: ANTIALLERGIC THERAPY
     Dosage: UNK
     Route: 065
  2. TRILEPTAL [Suspect]
     Active Substance: OXCARBAZEPINE
     Indication: PRODUCT USED FOR UNKNOWN INDICATION
     Dosage: 600 MG
     Route: 065
     Dates: start: 2008

REACTIONS (8)
  - Asthma [Unknown]
  - Hypersensitivity [Unknown]
  - Malaise [Unknown]
  - Fatigue [Unknown]
  - Respiratory tract infection [Unknown]
  - Pneumonia bacterial [Unknown]
  - Cough [Unknown]
  - Sinusitis [Unknown]

NARRATIVE: CASE EVENT DATE: 201908
